FAERS Safety Report 24304517 (Version 1)
Quarter: 2024Q3

REPORT INFORMATION
  Report Type: Spontaneous
  Country: BR (occurrence: BR)
  Receive Date: 20240910
  Receipt Date: 20240910
  Transmission Date: 20241017
  Serious: Yes (Hospitalization, Other)
  Sender: BIOMARIN
  Company Number: BR-SA-2024SA256754

PATIENT

DRUGS (5)
  1. ALDURAZYME [Suspect]
     Active Substance: LARONIDASE
     Indication: Mucopolysaccharidosis I
     Dosage: 4 DF (VIALS), QW
     Route: 042
     Dates: start: 20050906, end: 2007
  2. IBUPROFEN SODIUM [Concomitant]
     Active Substance: IBUPROFEN SODIUM
     Indication: Premedication
     Dosage: 10-15 MG/KG 40 DROPS
     Dates: start: 20050816
  3. DIPHENHYDRAMINE [Concomitant]
     Active Substance: DIPHENHYDRAMINE
     Indication: Premedication
     Dosage: 1.25 MG/KG 0.4 ML
     Dates: start: 20050816
  4. LORATADINE [Concomitant]
     Active Substance: LORATADINE
     Indication: Cough
     Dosage: UNK UNK, QD
     Dates: start: 20050724, end: 20050803
  5. EPICITRIN [Concomitant]
     Indication: Skin lesion
     Dosage: UNK UNK, BID
     Dates: start: 20050607, end: 20050703

REACTIONS (37)
  - Subdural haematoma [Recovering/Resolving]
  - Apnoea [Unknown]
  - Femur fracture [Unknown]
  - Sleep apnoea syndrome [Unknown]
  - Arthropathy [Unknown]
  - Loss of personal independence in daily activities [Unknown]
  - Abdominal distension [Unknown]
  - Abdominal discomfort [Unknown]
  - Weight increased [Unknown]
  - Discouragement [Unknown]
  - Urinary glycosaminoglycans increased [Unknown]
  - Otitis media [Unknown]
  - Obstructive airways disorder [Unknown]
  - Obstructive sleep apnoea syndrome [Unknown]
  - Sleep disorder [Unknown]
  - Mouth breathing [Unknown]
  - Bruxism [Unknown]
  - Haemoglobin abnormal [Unknown]
  - White blood cell disorder [Unknown]
  - Platelet disorder [Unknown]
  - Activated partial thromboplastin time abnormal [Unknown]
  - Prothrombin time abnormal [Unknown]
  - Blood creatinine abnormal [Unknown]
  - Blood urea abnormal [Unknown]
  - Pleural effusion [Unknown]
  - Hypotonia [Unknown]
  - Rhinorrhoea [Unknown]
  - Productive cough [Unknown]
  - Cyanosis [Unknown]
  - Snoring [Unknown]
  - Skin lesion [Unknown]
  - Lung hyperinflation [Unknown]
  - Bone disorder [Unknown]
  - Infection [Unknown]
  - Cough [Unknown]
  - Fatigue [Unknown]
  - Headache [Unknown]

NARRATIVE: CASE EVENT DATE: 20060905
